FAERS Safety Report 17004065 (Version 5)
Quarter: 2020Q4

REPORT INFORMATION
  Report Type: Report from Study
  Country: US (occurrence: US)
  Receive Date: 20191107
  Receipt Date: 20201008
  Transmission Date: 20210113
  Serious: Yes (Hospitalization, Other)
  Sender: FDA-Public Use
  Company Number: US-SA-2019SA296697

PATIENT

DRUGS (1)
  1. ALEMTUZUMAB [Suspect]
     Active Substance: ALEMTUZUMAB
     Indication: MULTIPLE SCLEROSIS
     Dosage: 12 MG, QD
     Route: 041
     Dates: start: 20191014, end: 20191015

REACTIONS (5)
  - Neoplasm malignant [Unknown]
  - Haemoptysis [Recovered/Resolved]
  - Autoimmune disorder [Unknown]
  - Infusion related reaction [Unknown]
  - Pneumonitis [Unknown]

NARRATIVE: CASE EVENT DATE: 201910
